FAERS Safety Report 14837336 (Version 2)
Quarter: 2018Q2

REPORT INFORMATION
  Report Type: Spontaneous
  Country: AU (occurrence: AU)
  Receive Date: 20180502
  Receipt Date: 20180530
  Transmission Date: 20180711
  Serious: Yes (Other)
  Sender: FDA-Public Use
  Company Number: AU-BAYER-2018-080102

PATIENT

DRUGS (1)
  1. NEXAVAR [Suspect]
     Active Substance: SORAFENIB
     Indication: HEPATOCELLULAR CARCINOMA
     Dosage: DAILY DOSE OF (GREATHER THAN OR EQUAL TO) 400 MG FOR AT LEAST 20 OF THE 28 DAYS OF TREATMENT

REACTIONS (1)
  - Hepatocellular carcinoma [None]
